FAERS Safety Report 5295458-2 (Version None)
Quarter: 2007Q2

REPORT INFORMATION
  Report Type: 
  Country: None (occurrence: None)
  Receive Date: 20070412
  Receipt Date: 20070402
  Transmission Date: 20071010
  Serious: Yes (Other)
  Sender: FDA-Public Use
  Company Number: US-PFIZER INC-2007027671

PATIENT
  Sex: Female
  Weight: 63.5 kg

DRUGS (8)
  1. LIPITOR [Suspect]
     Indication: BLOOD CHOLESTEROL INCREASED
  2. ZYRTEC [Concomitant]
  3. NEXIUM [Concomitant]
  4. PAXIL [Concomitant]
  5. CALCIUM [Concomitant]
  6. VITAMINS [Concomitant]
  7. GLUCOSAMINE [Concomitant]
  8. VERAPAMIL [Concomitant]

REACTIONS (2)
  - DYSSTASIA [None]
  - MYALGIA [None]
